FAERS Safety Report 13661157 (Version 1)
Quarter: 2017Q2

REPORT INFORMATION
  Report Type: Report from Study
  Country: US (occurrence: US)
  Receive Date: 20170616
  Receipt Date: 20170616
  Transmission Date: 20170830
  Serious: No
  Sender: FDA-Public Use
  Company Number: US-US WORLDMEDS, LLC-USW201703-000418

PATIENT
  Sex: Male
  Weight: 97.06 kg

DRUGS (6)
  1. APOKYN [Suspect]
     Active Substance: APOMORPHINE HYDROCHLORIDE
     Indication: PARKINSON^S DISEASE
     Route: 058
     Dates: start: 20160423
  2. ENTACAPONE. [Concomitant]
     Active Substance: ENTACAPONE
  3. VERSICARE [Concomitant]
  4. CELEBREX [Concomitant]
     Active Substance: CELECOXIB
  5. CARBIDOPA. [Concomitant]
     Active Substance: CARBIDOPA
  6. ROPINIROLE. [Concomitant]
     Active Substance: ROPINIROLE

REACTIONS (2)
  - Contusion [Recovering/Resolving]
  - Fall [Recovering/Resolving]
